FAERS Safety Report 19412301 (Version 1)
Quarter: 2021Q2

REPORT INFORMATION
  Report Type: Spontaneous
  Country: US (occurrence: US)
  Receive Date: 20210614
  Receipt Date: 20210614
  Transmission Date: 20210717
  Serious: No
  Sender: FDA-Public Use
  Company Number: US-BAUSCH-BL-2021-014907

PATIENT
  Age: 46 Year
  Sex: Female

DRUGS (1)
  1. LUMIFY [Suspect]
     Active Substance: BRIMONIDINE TARTRATE
     Indication: OCULAR HYPERAEMIA
     Dosage: ABOUT 4 TO 5 MONTHS AGO
     Route: 047
     Dates: start: 2021, end: 202104

REACTIONS (3)
  - Vision blurred [Not Recovered/Not Resolved]
  - Insomnia [Unknown]
  - Therapy interrupted [Unknown]

NARRATIVE: CASE EVENT DATE: 202104
